FAERS Safety Report 5161296-4 (Version None)
Quarter: 2006Q4

REPORT INFORMATION
  Report Type: 
  Country: None (occurrence: None)
  Receive Date: 20061130
  Receipt Date: 20061013
  Transmission Date: 20070319
  Serious: Yes (Hospitalization)
  Sender: FDA-Public Use
  Company Number: US-BRISTOL-MYERS SQUIBB COMPANY-13541677

PATIENT
  Age: 65 Year
  Sex: Male

DRUGS (2)
  1. ERBITUX [Suspect]
     Indication: NEOPLASM MALIGNANT
  2. BENADRYL [Concomitant]
     Indication: PREMEDICATION
     Route: 042

REACTIONS (1)
  - DYSPNOEA [None]
